FAERS Safety Report 8520725-6 (Version None)
Quarter: 2012Q3

REPORT INFORMATION
  Report Type: 
  Country: None (occurrence: None)
  Receive Date: 20120705
  Receipt Date: 20120620
  Transmission Date: 20120928
  Serious: Yes (Other)
  Sender: FDA-Public Use
  Company Number: 2012SP034884

PATIENT
  Age: 84 Year
  Sex: Female
  Weight: 40 kg

DRUGS (4)
  1. ROCURONIUM BROMIDE [Suspect]
     Indication: NEUROMUSCULAR BLOCKING THERAPY
     Dosage: 5;30 MG, ONCE, IV
     Route: 042
  2. FENTANYL [Concomitant]
  3. KETAMINE HCL [Concomitant]
  4. MIDAZOLAM [Concomitant]

REACTIONS (3)
  - CARDIAC ARREST [None]
  - BLOOD PRESSURE SYSTOLIC DECREASED [None]
  - HEART RATE DECREASED [None]
